FAERS Safety Report 6975245-7 (Version None)
Quarter: 2010Q3

REPORT INFORMATION
  Report Type: 
  Country: None (occurrence: None)
  Receive Date: 20100910
  Receipt Date: 20090223
  Transmission Date: 20110219
  Serious: No
  Sender: FDA-Public Use
  Company Number: US-WYE-H08329109

PATIENT
  Sex: Female
  Weight: 74.91 kg

DRUGS (5)
  1. PRISTIQ [Suspect]
     Indication: DEPRESSION
  2. CONJUGATED ESTROGENS [Concomitant]
  3. MOBIC [Concomitant]
  4. TRAMADOL HYDROCHLORIDE [Concomitant]
  5. LYRICA [Concomitant]

REACTIONS (4)
  - ABDOMINAL PAIN UPPER [None]
  - CONFUSIONAL STATE [None]
  - DRUG EFFECT DECREASED [None]
  - HEADACHE [None]
